FAERS Safety Report 20534959 (Version 2)
Quarter: 2022Q1

REPORT INFORMATION
  Report Type: Other
  Country: US (occurrence: None)
  Receive Date: 20220302
  Receipt Date: 20220307
  Transmission Date: 20220423
  Serious: Yes (Death, Other)
  Sender: FDA-Public Use
  Company Number: US-ROCHE-3039381

PATIENT
  Sex: Male

DRUGS (3)
  1. HERCEPTIN [Suspect]
     Active Substance: TRASTUZUMAB
     Indication: Hyponatraemia
     Dosage: INFUSE 460MG INTRAVENOUSLY DAY 1 EVERY 3 WEEK(S)
     Route: 042
  2. HERCEPTIN [Suspect]
     Active Substance: TRASTUZUMAB
     Indication: Malignant neoplasm of ampulla of Vater
  3. HERCEPTIN [Suspect]
     Active Substance: TRASTUZUMAB
     Indication: Blood osmolarity decreased

REACTIONS (2)
  - Death [Fatal]
  - Off label use [Unknown]
